FAERS Safety Report 13242792 (Version 4)
Quarter: 2017Q2

REPORT INFORMATION
  Report Type: Spontaneous
  Country: JP (occurrence: JP)
  Receive Date: 20170216
  Receipt Date: 20170425
  Transmission Date: 20170830
  Serious: Yes (Life-Threatening, Hospitalization, Other)
  Sender: FDA-Public Use
  Company Number: JP-MYLANLABS-2017M1009941

PATIENT

DRUGS (3)
  1. CARBOCISTEINE [Concomitant]
     Active Substance: CARBOCYSTEINE
     Indication: PERTUSSIS
     Route: 048
     Dates: start: 20151018, end: 20151101
  2. KLARICID DRY SYRUP 10% [Suspect]
     Active Substance: CLARITHROMYCIN
     Indication: PERTUSSIS
     Route: 048
     Dates: start: 20151018, end: 20151101
  3. PULSMARIN A [Concomitant]
     Active Substance: AMBROXOL HYDROCHLORIDE
     Indication: PERTUSSIS
     Route: 048
     Dates: start: 20151018, end: 20151101

REACTIONS (1)
  - Meningitis streptococcal [Recovered/Resolved]

NARRATIVE: CASE EVENT DATE: 20151102
